FAERS Safety Report 8558767-7 (Version None)
Quarter: 2012Q3

REPORT INFORMATION
  Report Type: 
  Country: None (occurrence: None)
  Receive Date: 20120801
  Receipt Date: 20120720
  Transmission Date: 20120928
  Serious: Yes (Hospitalization, Other)
  Sender: FDA-Public Use
  Company Number: US-MSD-1204USA02815

PATIENT

DRUGS (6)
  1. FOSAMAX [Suspect]
     Indication: OSTEOPOROSIS
     Dosage: 70 MG, QW
     Route: 048
     Dates: start: 20090605
  2. FOSAMAX [Suspect]
     Dosage: 70 MG, QW
     Route: 048
     Dates: start: 20090605
  3. CALCIUM (UNSPECIFIED) [Concomitant]
     Indication: OSTEOPOROSIS
  4. VITAMIN D (UNSPECIFIED) [Concomitant]
     Indication: OSTEOPOROSIS
  5. MK-9278 [Concomitant]
     Dates: start: 20000101
  6. CALCIUM (UNSPECIFIED) (+) VITAMIN D (UNSPECIFIED) [Concomitant]
     Dosage: 1500 MG, UNK

REACTIONS (17)
  - DEPRESSION [None]
  - DECREASED APPETITE [None]
  - PELVIC FRACTURE [None]
  - WRIST FRACTURE [None]
  - STRESS [None]
  - ARTHROPATHY [None]
  - LUNG DISORDER [None]
  - HIP FRACTURE [None]
  - LOW TURNOVER OSTEOPATHY [None]
  - FALL [None]
  - PROCEDURAL HAEMORRHAGE [None]
  - CONSTIPATION [None]
  - URINARY TRACT INFECTION [None]
  - DENTAL CARIES [None]
  - ANAEMIA POSTOPERATIVE [None]
  - INAPPROPRIATE SCHEDULE OF DRUG ADMINISTRATION [None]
  - OSTEOPOROSIS [None]
